FAERS Safety Report 11606145 (Version 3)
Quarter: 2016Q1

REPORT INFORMATION
  Report Type: Report from Study
  Country: US (occurrence: US)
  Receive Date: 20151007
  Receipt Date: 20160307
  Transmission Date: 20160525
  Serious: Yes (Hospitalization, Other)
  Sender: FDA-Public Use
  Company Number: US-ACTELION-A-US2015-124761

PATIENT
  Age: 82 Year
  Sex: Female

DRUGS (1)
  1. MACITENTAN [Suspect]
     Active Substance: MACITENTAN
     Indication: PULMONARY ARTERIAL HYPERTENSION
     Dosage: 10 MG, QD
     Route: 048
     Dates: start: 20150603

REACTIONS (7)
  - Transfusion [Recovering/Resolving]
  - Cardiac failure congestive [Recovering/Resolving]
  - Kidney infection [Recovering/Resolving]
  - Cellulitis [Recovered/Resolved]
  - Gastric haemorrhage [Recovered/Resolved]
  - Urinary tract infection [Recovering/Resolving]
  - Anaemia [Recovering/Resolving]
